FAERS Safety Report 5947324-4 (Version None)
Quarter: 2008Q4

REPORT INFORMATION
  Report Type: 
  Country: None (occurrence: None)
  Receive Date: 20081110
  Receipt Date: 20081029
  Transmission Date: 20090506
  Serious: Yes (Hospitalization, Other)
  Sender: FDA-Public Use
  Company Number: VE-PFIZER INC-2008082920

PATIENT
  Sex: Female
  Weight: 59 kg

DRUGS (2)
  1. CADUET [Suspect]
     Indication: HYPERTENSION
     Dosage: TEXT:5 MG/10 MG
     Route: 048
     Dates: start: 20080731, end: 20080924
  2. CADUET [Suspect]
     Indication: HYPERLIPIDAEMIA

REACTIONS (3)
  - ABDOMINAL PAIN [None]
  - CHOLURIA [None]
  - JAUNDICE [None]
